FAERS Safety Report 7241684-2 (Version None)
Quarter: 2011Q1

REPORT INFORMATION
  Report Type: 
  Country: None (occurrence: None)
  Receive Date: 20110124
  Receipt Date: 20110114
  Transmission Date: 20110831
  Serious: Yes (Other)
  Sender: FDA-Public Use
  Company Number: PHHY2010US40643

PATIENT
  Sex: Female

DRUGS (3)
  1. ATIVAN [Concomitant]
     Indication: ANXIETY
  2. EXTAVIA [Suspect]
     Indication: MULTIPLE SCLEROSIS
     Dosage: 0.25 MG, QOD
     Route: 058
     Dates: start: 20100401
  3. PROZAC [Concomitant]

REACTIONS (11)
  - JOINT INJURY [None]
  - DIZZINESS [None]
  - ASTHENIA [None]
  - MULTIPLE SCLEROSIS RELAPSE [None]
  - MUSCLE SPASMS [None]
  - BALANCE DISORDER [None]
  - CRYING [None]
  - INJECTION SITE RASH [None]
  - VISION BLURRED [None]
  - DEPRESSION [None]
  - FALL [None]
